FAERS Safety Report 9997317 (Version 1)
Quarter: 2014Q1

REPORT INFORMATION
  Report Type: Spontaneous
  Country: US (occurrence: None)
  Receive Date: 20140218
  Receipt Date: 20140218
  Transmission Date: 20141002
  Serious: Yes (Other)
  Sender: FDA-Public Use
  Company Number: 1000051578

PATIENT
  Age: 28 Year
  Sex: Female
  Weight: 122.4 kg

DRUGS (2)
  1. VIIBRYD [Suspect]
     Indication: DEPRESSION
     Dosage: 10 MG (10 MG, 1 IN 1 D), ORAL
     Route: 048
     Dates: start: 20130503, end: 20130517
  2. LEXAPRO (ESCITALOPRAM OXALATE) (ESCITALOPRAM OXALATE) [Concomitant]

REACTIONS (7)
  - Nightmare [None]
  - Sleep paralysis [None]
  - Hallucination [None]
  - Paranoia [None]
  - Abdominal discomfort [None]
  - Diarrhoea [None]
  - Intentional drug misuse [None]
